FAERS Safety Report 14670230 (Version 1)
Quarter: 2018Q1

REPORT INFORMATION
  Report Type: Spontaneous
  Country: ES (occurrence: ES)
  Receive Date: 20180322
  Receipt Date: 20180322
  Transmission Date: 20180509
  Serious: Yes (Other)
  Sender: FDA-Public Use
  Company Number: ES-PFIZER INC-2018115178

PATIENT
  Age: 49 Year
  Sex: Female
  Weight: 55 kg

DRUGS (5)
  1. PACLITAXEL. [Suspect]
     Active Substance: PACLITAXEL
     Indication: CYSTADENOCARCINOMA OVARY
     Dosage: 207 MG, UNK
     Route: 042
     Dates: start: 20170718, end: 20170718
  2. DEXAMETHASONE SODIUM PHOSPHATE. [Concomitant]
     Active Substance: DEXAMETHASONE SODIUM PHOSPHATE
     Indication: CYSTADENOCARCINOMA OVARY
     Dosage: 20 MG, UNK
     Route: 042
     Dates: start: 20170718
  3. ONDANSETRON HYDROCHLORIDE. [Concomitant]
     Active Substance: ONDANSETRON HYDROCHLORIDE
     Indication: CYSTADENOCARCINOMA OVARY
     Dosage: 8 MG, UNK
     Route: 042
     Dates: start: 20170718
  4. DEXCHLORPHENIRAMIN /00043702/ [Concomitant]
     Indication: CYSTADENOCARCINOMA OVARY
     Dosage: 5 MG, UNK
     Route: 042
     Dates: start: 20170718
  5. RANITIDINE HYDROCHLORIDE. [Concomitant]
     Active Substance: RANITIDINE HYDROCHLORIDE
     Indication: CYSTADENOCARCINOMA OVARY
     Dosage: 50 MG, UNK
     Route: 042
     Dates: start: 20170718

REACTIONS (3)
  - Infusion related reaction [Recovered/Resolved]
  - Oxygen saturation decreased [Recovered/Resolved]
  - Hypotension [Recovered/Resolved]

NARRATIVE: CASE EVENT DATE: 20170718
